FAERS Safety Report 20987759 (Version 4)
Quarter: 2025Q1

REPORT INFORMATION
  Report Type: Spontaneous
  Country: US (occurrence: US)
  Receive Date: 20220621
  Receipt Date: 20250116
  Transmission Date: 20250408
  Serious: Yes (Life-Threatening, Hospitalization)
  Sender: PFIZER
  Company Number: US-PFIZER INC-PV202200005126

PATIENT
  Age: 76 Year
  Sex: Female
  Weight: 51.701 kg

DRUGS (3)
  1. PREMARIN [Suspect]
     Active Substance: ESTROGENS, CONJUGATED
     Indication: Hormone replacement therapy
     Dosage: 0.3 MG, 1X/DAY
     Route: 048
     Dates: start: 1982
  2. SOMA [Concomitant]
     Active Substance: CARISOPRODOL
     Indication: Muscle spasms
     Dosage: 350 MG, 1X/DAY
  3. ATORVASTATIN [Concomitant]
     Active Substance: ATORVASTATIN
     Indication: Blood cholesterol abnormal
     Dosage: 20 MG, 1X/DAY

REACTIONS (1)
  - Cerebrovascular accident [Recovering/Resolving]

NARRATIVE: CASE EVENT DATE: 20241127
